FAERS Safety Report 11179623 (Version 1)
Quarter: 2015Q2

REPORT INFORMATION
  Report Type: Spontaneous
  Country: CN (occurrence: CN)
  Receive Date: 20150611
  Receipt Date: 20150611
  Transmission Date: 20150821
  Serious: Yes (Death, Hospitalization, Other)
  Sender: FDA-Public Use
  Company Number: CN-ASTRAZENECA-2015SE56239

PATIENT
  Age: 19459 Day
  Sex: Male
  Weight: 92 kg

DRUGS (7)
  1. ZUKAMU KELI [Suspect]
     Active Substance: HERBALS
     Indication: VIRAL INFECTION
     Route: 048
     Dates: start: 20141123, end: 20141123
  2. CEFALEXIN [Suspect]
     Active Substance: CEPHALEXIN
     Indication: INFECTION
     Route: 048
     Dates: start: 20141123, end: 20141123
  3. LOSARTAN POTASSIUM. [Suspect]
     Active Substance: LOSARTAN POTASSIUM
     Indication: HYPERTENSION
     Route: 048
     Dates: start: 20141123, end: 20141123
  4. AVELOX [Suspect]
     Active Substance: MOXIFLOXACIN HYDROCHLORIDE
     Indication: INFECTION
     Route: 048
     Dates: start: 20141123, end: 20141123
  5. AMOXICILLIN. [Suspect]
     Active Substance: AMOXICILLIN
     Indication: INFECTION
     Route: 048
     Dates: start: 20141123, end: 20141123
  6. BUDESONIDE. [Suspect]
     Active Substance: BUDESONIDE
     Indication: WHEEZING
     Route: 055
     Dates: start: 20141123, end: 20141123
  7. YAN YAN QING WAN [Suspect]
     Active Substance: HERBALS
     Indication: THROAT IRRITATION
     Route: 048
     Dates: start: 20141123, end: 20141123

REACTIONS (11)
  - Laryngeal oedema [Fatal]
  - Coma [Fatal]
  - Orthopnoea [Unknown]
  - Loss of consciousness [Unknown]
  - Cardio-respiratory arrest [Fatal]
  - Chest discomfort [Unknown]
  - Dyspnoea [Unknown]
  - Sensation of foreign body [Unknown]
  - Oropharyngeal pain [Unknown]
  - Cyanosis [Unknown]
  - Anaphylactic shock [Fatal]

NARRATIVE: CASE EVENT DATE: 20140305
